FAERS Safety Report 8796238 (Version 5)
Quarter: 2013Q2

REPORT INFORMATION
  Report Type: Spontaneous
  Country: US (occurrence: US)
  Receive Date: 20120920
  Receipt Date: 20130607
  Transmission Date: 20140414
  Serious: Yes (Hospitalization)
  Sender: FDA-Public Use
  Company Number: US-BAYER-2012-096585

PATIENT
  Age: 38 Year
  Sex: Female
  Weight: 83.9 kg

DRUGS (7)
  1. YAZ [Suspect]
     Dosage: UNK
     Dates: start: 201104, end: 201106
  2. GIANVI [Suspect]
     Indication: ACNE
     Dosage: UNK
     Dates: start: 20110427, end: 201106
  3. SULFAMETHOXAZOLE W/TRIMETHOPRIM [Concomitant]
  4. PROZAC [Concomitant]
     Dosage: 20 MG, DAILY
     Route: 048
     Dates: start: 20110616
  5. AMOXICILLIN [Concomitant]
     Dosage: 500 MG, UNK
  6. MULTIVITAMIN [Concomitant]
     Dosage: UNK, DAILY
  7. VITAMIN D [Concomitant]
     Dosage: UNK, DAILY

REACTIONS (6)
  - Pulmonary embolism [None]
  - Pulmonary infarction [None]
  - Injury [None]
  - Hypoxia [None]
  - Dyspnoea [None]
  - Back pain [None]
